FAERS Safety Report 7315655-1 (Version None)
Quarter: 2011Q1

REPORT INFORMATION
  Report Type: 
  Country: None (occurrence: None)
  Receive Date: 20110225
  Receipt Date: 20110216
  Transmission Date: 20110831
  Serious: Yes (Hospitalization)
  Sender: FDA-Public Use
  Company Number: US-ROCHE-760955

PATIENT
  Age: 66 Year
  Sex: Female
  Weight: 61.7 kg

DRUGS (8)
  1. BEVACIZUMAB [Suspect]
     Indication: BREAST CANCER
     Dosage: LAST DOSE: 17 JAN 2011
     Route: 042
     Dates: start: 20100909
  2. METFORMIN HCL [Concomitant]
  3. CYCLOPHOSPHAMIDE [Suspect]
     Indication: BREAST CANCER
     Dosage: LAST DOSE: 27 DEC 2010
     Route: 042
     Dates: start: 20100909
  4. AMLODIPINE [Concomitant]
  5. OMEPRAZOLE [Concomitant]
  6. BENAZEPRIL [Concomitant]
  7. DOCETAXEL [Suspect]
     Indication: BREAST CANCER
     Dosage: LAST DOSE: 27 SEP 2010
     Route: 042
     Dates: start: 20100909
  8. LORAZEPAM [Concomitant]

REACTIONS (1)
  - CHOLECYSTITIS [None]
